FAERS Safety Report 6255596-4 (Version None)
Quarter: 2009Q2

REPORT INFORMATION
  Report Type: 
  Country: None (occurrence: None)
  Receive Date: 20090630
  Receipt Date: 20090623
  Transmission Date: 20091009
  Serious: Yes (Congenital Anomaly)
  Sender: FDA-Public Use
  Company Number: GXKR2009DE07166

PATIENT
  Sex: Female

DRUGS (2)
  1. CLOMIPRAMINE (NGX) (CLOMIPRAMINE) UNKNOWN [Suspect]
     Dosage: MATERNAL DOSE: 50 MG BID, TRANSPLACENTAL
     Route: 064
  2. PAROXETINE HCL [Suspect]
     Dosage: MATERNAL DOSE:10 - 20 MG,TRANSPLACENTAL
     Route: 064
     Dates: start: 20080101

REACTIONS (3)
  - DRUG EXPOSURE DURING PREGNANCY [None]
  - HAEMANGIOMA CONGENITAL [None]
  - LIPOMENINGOCELE [None]
